FAERS Safety Report 14631464 (Version 9)
Quarter: 2018Q4

REPORT INFORMATION
  Report Type: Spontaneous
  Country: DE (occurrence: DE)
  Receive Date: 20180313
  Receipt Date: 20180808
  Transmission Date: 20190204
  Serious: Yes (Hospitalization, Other)
  Sender: FDA-Public Use
  Company Number: DE-TEVA-2018-DE-868086

PATIENT
  Age: 46 Year
  Sex: Female
  Weight: 55 kg

DRUGS (12)
  1. CEFIXIME. [Concomitant]
     Active Substance: CEFIXIME
     Indication: STAPHYLOCOCCAL INFECTION
     Dosage: TAKING DURING HOSPITAL STAY
     Route: 065
  2. CEFIXIME. [Concomitant]
     Active Substance: CEFIXIME
     Indication: PRODUCT USED FOR UNKNOWN INDICATION
  3. PANTOZOL [Suspect]
     Active Substance: PANTOPRAZOLE SODIUM
     Indication: POSTOPERATIVE CARE
     Route: 065
     Dates: start: 20161102, end: 20161214
  4. MONO-EMBOLEX [Suspect]
     Active Substance: CERTOPARIN SODIUM
     Indication: POSTOPERATIVE CARE
     Dosage: 1 DOSAGE FORMS DAILY;
     Route: 065
     Dates: start: 20161112, end: 20161214
  5. METRONIDAZOLE. [Concomitant]
     Active Substance: METRONIDAZOLE
     Indication: GASTROENTERITIS
     Route: 065
     Dates: start: 20161202, end: 20161214
  6. CLINDAMYCIN. [Concomitant]
     Active Substance: CLINDAMYCIN
     Indication: STAPHYLOCOCCAL INFECTION
     Route: 065
     Dates: start: 20161202, end: 20161214
  7. METRONIDAZOLE. [Concomitant]
     Active Substance: METRONIDAZOLE
     Indication: PRODUCT USED FOR UNKNOWN INDICATION
  8. CLINDAMYCIN. [Concomitant]
     Active Substance: CLINDAMYCIN
     Indication: PRODUCT USED FOR UNKNOWN INDICATION
  9. NOVALGIN (METAMIZOLE SODIUM) [Suspect]
     Active Substance: METAMIZOLE SODIUM
     Indication: POSTOPERATIVE CARE
     Route: 065
     Dates: start: 20161102, end: 20161214
  10. TRAMAL [Suspect]
     Active Substance: TRAMADOL
     Indication: POSTOPERATIVE CARE
     Route: 065
     Dates: start: 20161102, end: 20161214
  11. METOCLOPRAMIDE. [Suspect]
     Active Substance: METOCLOPRAMIDE
     Indication: POSTOPERATIVE CARE
     Route: 065
  12. TILIDINE [Suspect]
     Active Substance: TILIDINE
     Indication: POSTOPERATIVE CARE

REACTIONS (1)
  - Hepatic necrosis [Unknown]

NARRATIVE: CASE EVENT DATE: 20161219
